FAERS Safety Report 15317486 (Version 1)
Quarter: 2018Q3

REPORT INFORMATION
  Report Type: Spontaneous
  Country: US (occurrence: US)
  Receive Date: 20180824
  Receipt Date: 20180824
  Transmission Date: 20181010
  Serious: Yes (Other)
  Sender: FDA-Public Use
  Company Number: US-ASTRAZENECA-2018SF04757

PATIENT
  Age: 37 Year
  Sex: Male
  Weight: 86.2 kg

DRUGS (44)
  1. COREG [Concomitant]
     Active Substance: CARVEDILOL
     Indication: BLOOD PRESSURE ABNORMAL
     Dates: start: 2003, end: 2018
  2. ALLEGRA [Concomitant]
     Active Substance: FEXOFENADINE HYDROCHLORIDE
     Indication: MULTIPLE ALLERGIES
     Route: 048
     Dates: start: 20041122
  3. AZITHROMYCIN ANHYDROUS. [Concomitant]
     Active Substance: AZITHROMYCIN ANHYDROUS
     Dosage: TAKE 2 TABLETS BY MOUTH ONCE DAILY THEN TAKE 1 TABLE ONCE DAILY FOR 4 DAYS
     Route: 048
     Dates: start: 20061117
  4. AXID [Concomitant]
     Active Substance: NIZATIDINE
  5. ZANTAC [Concomitant]
     Active Substance: RANITIDINE HYDROCHLORIDE
     Dosage: 150 (OTC)
     Dates: start: 2018
  6. MUCINEX [Concomitant]
     Active Substance: GUAIFENESIN
     Route: 048
     Dates: start: 20030908
  7. BACITRACIN. [Concomitant]
     Active Substance: BACITRACIN
     Dosage: APPLY TO AFFECTED AREAS TWICE DAILY.
     Dates: start: 20040106
  8. AMOXICILLIN. [Concomitant]
     Active Substance: AMOXICILLIN
     Route: 048
     Dates: start: 20040106
  9. CLONIDINE. [Concomitant]
     Active Substance: CLONIDINE
     Indication: BLOOD PRESSURE ABNORMAL
     Dates: start: 2003, end: 2018
  10. CLONIDINE. [Concomitant]
     Active Substance: CLONIDINE
     Indication: BLOOD PRESSURE ABNORMAL
     Dates: start: 2003, end: 2018
  11. NORVASC [Concomitant]
     Active Substance: AMLODIPINE BESYLATE
     Route: 048
     Dates: start: 20041222
  12. CATAPRES [Concomitant]
     Active Substance: CLONIDINE HYDROCHLORIDE
     Dosage: TTS?2, APPLY 1 PATCH TO THE SKIN EVERY WEEK
     Route: 048
     Dates: start: 20030904
  13. HYDROCHLOROTHIAZIDE. [Concomitant]
     Active Substance: HYDROCHLOROTHIAZIDE
     Route: 048
     Dates: start: 20031123
  14. PENICILLIN VK [Concomitant]
     Active Substance: PENICILLIN V POTASSIUM
     Route: 048
     Dates: start: 20040329
  15. DOCUSATE SODIUM. [Concomitant]
     Active Substance: DOCUSATE SODIUM
     Route: 048
     Dates: start: 20050104
  16. NEXIUM 24HR [Suspect]
     Active Substance: ESOMEPRAZOLE MAGNESIUM
     Route: 048
  17. ENALAPRIL [Concomitant]
     Active Substance: ENALAPRIL
     Route: 048
     Dates: start: 20031216
  18. AMILORIDE W/HCTZ [Concomitant]
     Dosage: 5?50 MG? TAKE 1 TABLET BY MOUTH DAILY
     Route: 048
     Dates: start: 20040106
  19. HYDROCODONE BITARTRATE AND ACETAMINOPHEN [Concomitant]
     Active Substance: ACETAMINOPHEN\HYDROCODONE BITARTRATE
     Indication: PAIN
     Dosage: 5?500 MG? TAKE 1 TABLET BY MOUTH 2 TIMES A DAY AS NEEDED
     Route: 048
     Dates: start: 20040106
  20. CALCITROL [Concomitant]
     Active Substance: CALCITRIOL
     Route: 048
     Dates: start: 20060322
  21. FUROSEMIDE. [Concomitant]
     Active Substance: FUROSEMIDE
     Route: 048
     Dates: start: 20060322
  22. PRILOSEC [Suspect]
     Active Substance: OMEPRAZOLE MAGNESIUM
     Indication: GASTROOESOPHAGEAL REFLUX DISEASE
     Route: 048
     Dates: start: 1990
  23. PREVACID [Suspect]
     Active Substance: LANSOPRAZOLE
     Indication: GASTROOESOPHAGEAL REFLUX DISEASE
     Route: 048
     Dates: start: 20070608
  24. NAPROXEN. [Concomitant]
     Active Substance: NAPROXEN
     Route: 048
     Dates: start: 20050208
  25. ZAROXOLYN [Concomitant]
     Active Substance: METOLAZONE
     Route: 048
     Dates: start: 20060512
  26. MINOXIDIL. [Concomitant]
     Active Substance: MINOXIDIL
     Indication: BLOOD PRESSURE ABNORMAL
     Dates: start: 2003, end: 2018
  27. MINOXIDIL. [Concomitant]
     Active Substance: MINOXIDIL
     Indication: BLOOD PRESSURE ABNORMAL
     Route: 048
     Dates: start: 20060502
  28. PEPCID [Concomitant]
     Active Substance: FAMOTIDINE
     Dosage: (PRESCRIPTION)
     Dates: start: 2018
  29. TUMS [Concomitant]
     Active Substance: CALCIUM CARBONATE
     Dosage: 20RNG 4 DAILY
     Dates: start: 2006, end: 2008
  30. METOPROLOL TARTRATE. [Concomitant]
     Active Substance: METOPROLOL TARTRATE
     Route: 048
     Dates: start: 20021125
  31. NEXIUM [Suspect]
     Active Substance: ESOMEPRAZOLE MAGNESIUM
     Indication: GASTROOESOPHAGEAL REFLUX DISEASE
     Route: 048
     Dates: start: 2000, end: 2010
  32. PREVACID [Suspect]
     Active Substance: LANSOPRAZOLE
     Indication: GASTROOESOPHAGEAL REFLUX DISEASE
     Route: 065
     Dates: start: 1990
  33. COREG [Concomitant]
     Active Substance: CARVEDILOL
     Indication: BLOOD PRESSURE ABNORMAL
     Route: 048
     Dates: start: 20060512
  34. CLONIDINE. [Concomitant]
     Active Substance: CLONIDINE
     Indication: BLOOD PRESSURE ABNORMAL
     Route: 048
     Dates: start: 20040313
  35. IBUPROFEN. [Concomitant]
     Active Substance: IBUPROFEN
     Dosage: TAKE 1 TO 2 TABLETS BY MOUTH EVERY 4 TO 6 HOURS AS NEEDED
     Route: 048
     Dates: start: 20040406
  36. CLINDAMYCIN HYDROCHLORIDE. [Concomitant]
     Active Substance: CLINDAMYCIN HYDROCHLORIDE
     Indication: INFECTION
     Route: 048
     Dates: start: 20040526
  37. KLOR?CON [Concomitant]
     Active Substance: POTASSIUM CHLORIDE
     Route: 048
     Dates: start: 20060322
  38. CARVEDILOL. [Concomitant]
     Active Substance: CARVEDILOL
     Route: 048
     Dates: start: 20060522
  39. NORCO [Concomitant]
     Active Substance: ACETAMINOPHEN\HYDROCODONE BITARTRATE
     Indication: PAIN
     Dates: start: 2004, end: 2018
  40. MONOPRIL HCT [Concomitant]
     Dosage: 20?12.5?TAKE 1 TABLET BY MOUTH DAILY
     Route: 048
     Dates: start: 20030331
  41. DOXYCYCLINE HYCLATE. [Concomitant]
     Active Substance: DOXYCYCLINE HYCLATE
     Route: 048
     Dates: start: 20031030
  42. BENZONATATE. [Concomitant]
     Active Substance: BENZONATATE
     Route: 048
     Dates: start: 20031123
  43. TEQUIN [Concomitant]
     Active Substance: GATIFLOXACIN
     Route: 048
     Dates: start: 20031216
  44. ROBITUSSIN DM [Concomitant]
     Active Substance: DEXTROMETHORPHAN HYDROBROMIDE\GUAIFENESIN
     Dosage: TAKE 1 TABLESPOONFUL BY MOUTH 4 TIMES A DAY
     Dates: start: 20050228

REACTIONS (6)
  - Renal failure [Not Recovered/Not Resolved]
  - Insomnia [Unknown]
  - End stage renal disease [Unknown]
  - Depression [Unknown]
  - Chronic kidney disease [Unknown]
  - Renal disorder [Unknown]

NARRATIVE: CASE EVENT DATE: 2002
